FAERS Safety Report 14927996 (Version 1)
Quarter: 2018Q2

REPORT INFORMATION
  Report Type: Spontaneous
  Country: JP (occurrence: JP)
  Receive Date: 20180523
  Receipt Date: 20180523
  Transmission Date: 20180711
  Serious: Yes (Other)
  Sender: FDA-Public Use
  Company Number: JP-GLAXOSMITHKLINE-JP2018JPN089502

PATIENT
  Age: 73 Year
  Sex: Female

DRUGS (1)
  1. FLUTIDE [Suspect]
     Active Substance: FLUTICASONE PROPIONATE
     Dosage: UNK
     Route: 055
     Dates: start: 201803

REACTIONS (6)
  - Headache [Unknown]
  - Ear pain [Unknown]
  - Central pain syndrome [Unknown]
  - Monoplegia [Unknown]
  - Peripheral swelling [Unknown]
  - Drug dose omission [Unknown]
